FAERS Safety Report 4458160-2 (Version None)
Quarter: 2004Q3

REPORT INFORMATION
  Report Type: 
  Country: None (occurrence: None)
  Receive Date: 20040922
  Receipt Date: 20040913
  Transmission Date: 20050211
  Serious: Yes (Hospitalization)
  Sender: FDA-Public Use
  Company Number: 2004233493SE

PATIENT
  Age: 31 Year
  Sex: Female

DRUGS (1)
  1. DEPO-PROVERA [Suspect]
     Dosage: EVERY 3 MONTHS, INTRAMUSCULAR
     Route: 030

REACTIONS (1)
  - INJECTION SITE INFECTION [None]
